FAERS Safety Report 10419582 (Version 1)
Quarter: 2014Q3

REPORT INFORMATION
  Report Type: Spontaneous
  Country: FR (occurrence: None)
  Receive Date: 20140827
  Receipt Date: 20140827
  Transmission Date: 20150326
  Serious: Yes (Other)
  Sender: FDA-Public Use
  Company Number: NSR_01607_2014

PATIENT
  Age: 49 Year
  Sex: Male

DRUGS (1)
  1. BACLOFEN. [Suspect]
     Active Substance: BACLOFEN
     Indication: ALCOHOLISM
     Dosage: PROGRESSIVE DOSE INCREASE

REACTIONS (10)
  - Logorrhoea [None]
  - Flight of ideas [None]
  - Distractibility [None]
  - Disinhibition [None]
  - Self esteem inflated [None]
  - Insomnia [None]
  - Mania [None]
  - Theft [None]
  - Refusal of treatment by patient [None]
  - Libido increased [None]
